FAERS Safety Report 16683201 (Version 2)
Quarter: 2019Q3

REPORT INFORMATION
  Report Type: Spontaneous
  Country: US (occurrence: US)
  Receive Date: 20190808
  Receipt Date: 20190910
  Transmission Date: 20191004
  Serious: No
  Sender: FDA-Public Use
  Company Number: US-PFIZER INC-2019337778

PATIENT
  Age: 60 Year
  Sex: Male
  Weight: 108.8 kg

DRUGS (1)
  1. DEMEROL [Suspect]
     Active Substance: MEPERIDINE HYDROCHLORIDE
     Indication: PAIN
     Dosage: UNK
     Route: 042

REACTIONS (3)
  - Hallucination [Unknown]
  - Drug ineffective [Unknown]
  - Feeling abnormal [Unknown]
